FAERS Safety Report 6660367-0 (Version None)
Quarter: 2010Q1

REPORT INFORMATION
  Report Type: 
  Country: None (occurrence: None)
  Receive Date: 20100330
  Receipt Date: 20100330
  Transmission Date: 20100710
  Serious: Yes (Hospitalization, Disabling)
  Sender: FDA-Public Use
  Company Number: None

PATIENT
  Sex: Female
  Weight: 101.6057 kg

DRUGS (6)
  1. AREDIA [Suspect]
     Indication: BREAST CANCER
     Dosage: 90 MG 1 X MONTHLY IV
     Route: 042
     Dates: start: 19990101, end: 20090101
  2. AREDIA [Suspect]
     Indication: METASTASES TO BONE
     Dosage: 90 MG 1 X MONTHLY IV
     Route: 042
     Dates: start: 19990101, end: 20090101
  3. ZOMETA [Suspect]
     Indication: BREAST CANCER
     Dates: start: 20010101
  4. ZOMETA [Suspect]
     Indication: METASTASES TO BONE
     Dates: start: 20010101
  5. ZOMETA [Suspect]
     Indication: BREAST CANCER
     Dates: start: 20060101
  6. ZOMETA [Suspect]
     Indication: METASTASES TO BONE
     Dates: start: 20060101

REACTIONS (2)
  - FALL [None]
  - FEMUR FRACTURE [None]
